FAERS Safety Report 6800558-9 (Version None)
Quarter: 2010Q2

REPORT INFORMATION
  Report Type: 
  Country: None (occurrence: None)
  Receive Date: 20100625
  Receipt Date: 20100625
  Transmission Date: 20101027
  Serious: Yes (Other)
  Sender: FDA-Public Use
  Company Number: None

PATIENT
  Sex: Female
  Weight: 18.1439 kg

DRUGS (2)
  1. BUDESONIDE [Suspect]
     Indication: ASTHMA
     Dosage: 0.25MG/2ML
     Dates: start: 20080222
  2. ALBUTEROL [Concomitant]

REACTIONS (2)
  - PRODUCT SUBSTITUTION ISSUE [None]
  - RESPIRATORY DISTRESS [None]
